FAERS Safety Report 9154356 (Version 1)
Quarter: 2013Q1

REPORT INFORMATION
  Report Type: Report from Study
  Country: JO (occurrence: JO)
  Receive Date: 20130311
  Receipt Date: 20130311
  Transmission Date: 20140127
  Serious: Yes (Life-Threatening, Hospitalization)
  Sender: FDA-Public Use
  Company Number: JO-SANOFI-AVENTIS-F01200602283

PATIENT
  Age: 58 Year
  Sex: Female
  Weight: 87 kg

DRUGS (10)
  1. OXALIPLATIN [Suspect]
     Indication: COLON CANCER
     Dosage: UNIT DOSE: 85 MG/M2
     Route: 041
     Dates: start: 20061104, end: 20061104
  2. 5-FU [Suspect]
     Indication: COLON CANCER
     Dosage: UNIT DOSE: 400 MG/M2
     Route: 040
     Dates: start: 20061104, end: 20061105
  3. 5-FU [Suspect]
     Indication: COLON CANCER
     Dosage: UNIT DOSE: 600 MG/M2
     Route: 041
     Dates: start: 20061104, end: 20061105
  4. LEUCOVORIN [Suspect]
     Indication: COLON CANCER
     Dosage: UNIT DOSE: 200 MG/M2
     Route: 041
     Dates: start: 20061104, end: 20061105
  5. CELECOXIB [Concomitant]
     Route: 065
  6. ESOMEPRAZOLE [Concomitant]
     Route: 065
  7. CAPTOPRIL [Concomitant]
     Route: 065
  8. CARVEDILOL [Concomitant]
     Route: 065
  9. GLIBENCLAMIDE [Concomitant]
     Route: 065
  10. METFORMIN [Concomitant]
     Route: 065

REACTIONS (1)
  - Angina pectoris [Recovered/Resolved]
